FAERS Safety Report 17750451 (Version 1)
Quarter: 2020Q2

REPORT INFORMATION
  Report Type: Spontaneous
  Country: US (occurrence: US)
  Receive Date: 20200505
  Receipt Date: 20200505
  Transmission Date: 20200714
  Serious: Yes (Life-Threatening, Disabling)
  Sender: FDA-Public Use
  Company Number: None

PATIENT
  Age: 52 Year
  Sex: Female
  Weight: 65.25 kg

DRUGS (1)
  1. MONTELUKAST [Suspect]
     Active Substance: MONTELUKAST SODIUM
     Indication: ASTHMA
     Dates: start: 20200101, end: 20200501

REACTIONS (7)
  - Depression [None]
  - Tremor [None]
  - Crying [None]
  - Anxiety [None]
  - Diplopia [None]
  - Nasal dryness [None]
  - Influenza like illness [None]

NARRATIVE: CASE EVENT DATE: 20200501
